FAERS Safety Report 6306956-4 (Version None)
Quarter: 2009Q3

REPORT INFORMATION
  Report Type: 
  Country: None (occurrence: None)
  Receive Date: 20090810
  Receipt Date: 20090731
  Transmission Date: 20100115
  Serious: Yes (Hospitalization)
  Sender: FDA-Public Use
  Company Number: SPV1-2009-01596

PATIENT
  Age: 90 Year
  Sex: Female

DRUGS (1)
  1. FOSRENOL [Suspect]
     Dosage: ORAL
     Route: 048
     Dates: start: 20090716

REACTIONS (4)
  - MEDICATION RESIDUE [None]
  - RECTAL HAEMORRHAGE [None]
  - SCRATCH [None]
  - WRONG TECHNIQUE IN DRUG USAGE PROCESS [None]
